FAERS Safety Report 20450644 (Version 1)
Quarter: 2022Q1

REPORT INFORMATION
  Report Type: Spontaneous
  Country: US (occurrence: US)
  Receive Date: 20220209
  Receipt Date: 20220209
  Transmission Date: 20220423
  Serious: No
  Sender: FDA-Public Use
  Company Number: US-BIOGEN-2022BI01094007

PATIENT
  Sex: Female

DRUGS (15)
  1. AVONEX PEN [Suspect]
     Active Substance: INTERFERON BETA-1A
     Indication: Multiple sclerosis
     Dosage: INJECT 1 PEN INTRAMUSCULARLY ONCE WEEKLY
     Route: 030
  2. AVONEX PEN [Suspect]
     Active Substance: INTERFERON BETA-1A
  3. AVONEX PEN [Suspect]
     Active Substance: INTERFERON BETA-1A
  4. AVONEX PEN [Suspect]
     Active Substance: INTERFERON BETA-1A
  5. MAGNESIUM [Concomitant]
     Active Substance: MAGNESIUM
     Route: 065
  6. POTASSIUM ACETATE [Concomitant]
     Active Substance: POTASSIUM ACETATE
     Route: 065
  7. OXYBUTYNIN CHLORIDE [Concomitant]
     Active Substance: OXYBUTYNIN CHLORIDE
     Route: 065
  8. NORTRIPTYLINE HYDROCHLORIDE [Concomitant]
     Active Substance: NORTRIPTYLINE HYDROCHLORIDE
     Route: 065
  9. BISOPROLOL FUMARATE/HYDRO [Concomitant]
     Route: 065
  10. BACLOFEN [Concomitant]
     Active Substance: BACLOFEN
     Route: 065
  11. AMLODIPINE BESYLATE/BENAZ [Concomitant]
     Route: 065
  12. ATORVASTATIN CALCIUM [Concomitant]
     Active Substance: ATORVASTATIN CALCIUM
     Route: 065
  13. CALCIUM CITRATE [Concomitant]
     Active Substance: CALCIUM CITRATE
     Route: 065
  14. VITAMIN D3 [Concomitant]
     Active Substance: CHOLECALCIFEROL
     Route: 065
  15. LEVOTHYROXINE SODIUM [Concomitant]
     Active Substance: LEVOTHYROXINE SODIUM
     Route: 065

REACTIONS (1)
  - Injection site mass [Unknown]
